FAERS Safety Report 4403565-9 (Version None)
Quarter: 2004Q3

REPORT INFORMATION
  Report Type: 
  Country: None (occurrence: None)
  Receive Date: 20040721
  Receipt Date: 20040714
  Transmission Date: 20050211
  Serious: Yes (Other)
  Sender: FDA-Public Use
  Company Number: US-GLAXOSMITHKLINE-A0518217A

PATIENT
  Age: 24 Year
  Sex: Female

DRUGS (2)
  1. WELLBUTRIN [Suspect]
     Indication: DEPRESSION
     Dosage: 300MG PER DAY
     Route: 048
     Dates: start: 20040501, end: 20040711
  2. ORAL CONTRACEPTIVE [Concomitant]

REACTIONS (3)
  - AGITATION [None]
  - FEELING ABNORMAL [None]
  - SUICIDAL IDEATION [None]
